FAERS Safety Report 9019601 (Version 2)
Quarter: 2013Q2

REPORT INFORMATION
  Report Type: Report from Study
  Country: AU (occurrence: AU)
  Receive Date: 20130118
  Receipt Date: 20130429
  Transmission Date: 20140414
  Serious: Yes (Other)
  Sender: FDA-Public Use
  Company Number: AU-ROCHE-1181196

PATIENT
  Age: 57 Year
  Sex: Male
  Weight: 60 kg

DRUGS (3)
  1. PEGASYS [Suspect]
     Indication: HEPATITIS C
     Route: 058
  2. PEGASYS [Suspect]
     Route: 058
  3. RIBAVIRIN [Suspect]
     Indication: HEPATITIS C
     Route: 048

REACTIONS (8)
  - Neutropenia [Recovered/Resolved]
  - Pancytopenia [Unknown]
  - Irritability [Recovered/Resolved]
  - Poor quality sleep [Recovered/Resolved]
  - Decreased appetite [Recovered/Resolved]
  - Pain [Recovered/Resolved]
  - Hepatic failure [Recovered/Resolved]
  - Hepatocellular carcinoma [Recovered/Resolved]
